FAERS Safety Report 5158692-8 (Version None)
Quarter: 2006Q4

REPORT INFORMATION
  Report Type: 
  Country: None (occurrence: None)
  Receive Date: 20061128
  Receipt Date: 20061115
  Transmission Date: 20070319
  Serious: No
  Sender: FDA-Public Use
  Company Number: US-ELI_LILLY_AND_COMPANY-US200611003156

PATIENT
  Age: 35 Year
  Sex: Male

DRUGS (4)
  1. CYMBALTA [Suspect]
     Dosage: 30 MG, DAILY (1/D)
     Dates: start: 20060101
  2. CYMBALTA [Suspect]
     Dosage: 60 MG, DAILY (1/D)
     Dates: start: 20061001
  3. XANAX                                   /USA/ [Concomitant]
     Indication: ANXIETY
     Dosage: 1 MG, UNK
  4. SOMA [Concomitant]
     Dosage: UNK, AS NEEDED

REACTIONS (7)
  - BLOOD ALKALINE PHOSPHATASE INCREASED [None]
  - FLUID RETENTION [None]
  - INFLUENZA LIKE ILLNESS [None]
  - OEDEMA PERIPHERAL [None]
  - PAIN [None]
  - PARAESTHESIA [None]
  - PYREXIA [None]
